FAERS Safety Report 15786852 (Version 1)
Quarter: 2018Q4

REPORT INFORMATION
  Report Type: Spontaneous
  Country: US (occurrence: US)
  Receive Date: 20181212
  Receipt Date: 20181212
  Transmission Date: 20190205
  Serious: Yes (Hospitalization)
  Sender: FDA-Public Use
  Company Number: None

PATIENT
  Sex: Female

DRUGS (2)
  1. CAPECITABINE 150MG [Suspect]
     Active Substance: CAPECITABINE
     Dosage: FOR 14 DAYS
     Route: 048
  2. CAPECITABINE. [Suspect]
     Active Substance: CAPECITABINE
     Dosage: FOR 14 DAYS 7 DAYS OFF
     Route: 048

REACTIONS (1)
  - Sepsis [None]
